FAERS Safety Report 17549683 (Version 1)
Quarter: 2020Q1

REPORT INFORMATION
  Report Type: Spontaneous
  Country: US (occurrence: US)
  Receive Date: 20200317
  Receipt Date: 20200317
  Transmission Date: 20200409
  Serious: No
  Sender: FDA-Public Use
  Company Number: US-BAYER-2020-043464

PATIENT
  Age: 72 Year
  Sex: Male

DRUGS (2)
  1. OTC-HP [Concomitant]
  2. CLARITIN-D 24 HOUR [Suspect]
     Active Substance: LORATADINE\PSEUDOEPHEDRINE SULFATE
     Indication: NASAL CONGESTION
     Route: 048

REACTIONS (2)
  - Drug ineffective [None]
  - Nasal dryness [Unknown]
